FAERS Safety Report 7906587-6 (Version None)
Quarter: 2011Q4

REPORT INFORMATION
  Report Type: 
  Country: None (occurrence: None)
  Receive Date: 20111109
  Receipt Date: 20111109
  Transmission Date: 20120403
  Serious: Yes (Hospitalization)
  Sender: FDA-Public Use
  Company Number: None

PATIENT
  Age: 53 Year
  Sex: Male
  Weight: 89.1 kg

DRUGS (1)
  1. PREDNISONE [Suspect]
     Indication: POLYNEUROPATHY
     Dosage: 1 TAB EVERY DAY PO
     Route: 048
     Dates: start: 20080701

REACTIONS (1)
  - OSTEONECROSIS [None]
